FAERS Safety Report 7490202-2 (Version None)
Quarter: 2011Q2

REPORT INFORMATION
  Report Type: 
  Country: None (occurrence: None)
  Receive Date: 20110517
  Receipt Date: 20110517
  Transmission Date: 20111010
  Serious: Yes (Life-Threatening, Hospitalization, Other)
  Sender: FDA-Public Use
  Company Number: None

PATIENT
  Age: 56 Year
  Sex: Female
  Weight: 65.7716 kg

DRUGS (1)
  1. BACTRIM DS [Suspect]

REACTIONS (11)
  - PYREXIA [None]
  - TOOTHACHE [None]
  - INFLUENZA LIKE ILLNESS [None]
  - PAIN [None]
  - FACIAL PAIN [None]
  - PAIN IN EXTREMITY [None]
  - SWELLING FACE [None]
  - ORAL PAIN [None]
  - OEDEMA PERIPHERAL [None]
  - SKIN EXFOLIATION [None]
  - RHINALGIA [None]
